FAERS Safety Report 6490589-3 (Version None)
Quarter: 2009Q4

REPORT INFORMATION
  Report Type: 
  Country: None (occurrence: None)
  Receive Date: 20091124
  Receipt Date: 20090618
  Transmission Date: 20100525
  Serious: Yes (Life-Threatening)
  Sender: FDA-Public Use
  Company Number: 284255

PATIENT
  Age: 84 Year
  Sex: Female
  Weight: 73 kg

DRUGS (3)
  1. HERCEPTIN [Suspect]
     Indication: BREAST CANCER METASTATIC
     Dosage: 6 MG/KG, Q3W, INTERVENOUS
     Route: 042
     Dates: start: 20070101
  2. ARIMIDEX [Concomitant]
  3. EXEMESTANE [Concomitant]

REACTIONS (2)
  - DISEASE PROGRESSION [None]
  - TUMOUR MARKER INCREASED [None]
